FAERS Safety Report 7795767-9 (Version None)
Quarter: 2011Q4

REPORT INFORMATION
  Report Type: 
  Country: None (occurrence: None)
  Receive Date: 20111004
  Receipt Date: 20110923
  Transmission Date: 20120403
  Serious: Yes (Death, Hospitalization, Other)
  Sender: FDA-Public Use
  Company Number: US-BAXTER-2011BH027824

PATIENT
  Age: 79 Year
  Sex: Female

DRUGS (3)
  1. DIANEAL [Suspect]
     Route: 033
     Dates: start: 20110601, end: 20110901
  2. PS PRODUCT NOT LISTED [Concomitant]
     Indication: BLOOD PRESSURE
     Route: 065
     Dates: end: 20110901
  3. DIANEAL [Suspect]
     Indication: PERITONEAL DIALYSIS
     Route: 033
     Dates: start: 20110601, end: 20110901

REACTIONS (7)
  - INTERNATIONAL NORMALISED RATIO DECREASED [None]
  - BACK INJURY [None]
  - CACHEXIA [None]
  - SKELETAL INJURY [None]
  - FALL [None]
  - PROTHROMBIN LEVEL DECREASED [None]
  - HYPOPHAGIA [None]
